FAERS Safety Report 7851563-5 (Version None)
Quarter: 2011Q4

REPORT INFORMATION
  Report Type: 
  Country: None (occurrence: None)
  Receive Date: 20111026
  Receipt Date: 20111017
  Transmission Date: 20120403
  Serious: No
  Sender: FDA-Public Use
  Company Number: JP-ASTRAZENECA-2011SE37404

PATIENT
  Age: 72 Year
  Sex: Female
  Weight: 56 kg

DRUGS (8)
  1. AMARYL [Concomitant]
     Indication: DIABETES MELLITUS
     Route: 048
     Dates: start: 20101112
  2. JANUVIA [Suspect]
     Indication: DIABETES MELLITUS
     Route: 048
     Dates: start: 20110221, end: 20110614
  3. CRESTOR [Suspect]
     Indication: HYPERCHOLESTEROLAEMIA
     Route: 048
     Dates: start: 20100824, end: 20110513
  4. CRESTOR [Suspect]
     Route: 048
     Dates: start: 20110514, end: 20110707
  5. CALBLOCK [Concomitant]
     Indication: HYPERTENSION
     Route: 048
     Dates: start: 20100824
  6. ALLORIN [Concomitant]
     Indication: HYPERURICAEMIA
     Route: 048
     Dates: start: 20100924
  7. MUCOSTA [Concomitant]
     Indication: GASTRITIS
     Route: 048
     Dates: start: 20020424
  8. ASPIRIN [Concomitant]
     Indication: CEREBRAL INFARCTION
     Route: 048
     Dates: start: 20090302

REACTIONS (2)
  - BLOOD CREATININE INCREASED [None]
  - OEDEMA PERIPHERAL [None]
